FAERS Safety Report 7335026-1 (Version None)
Quarter: 2011Q1

REPORT INFORMATION
  Report Type: 
  Country: None (occurrence: None)
  Receive Date: 20110307
  Receipt Date: 20110225
  Transmission Date: 20110831
  Serious: Yes (Other)
  Sender: FDA-Public Use
  Company Number: US-JNJFOC-20101003193

PATIENT
  Sex: Male
  Weight: 58.97 kg

DRUGS (2)
  1. DURAGESIC-50 [Suspect]
     Dosage: (100 UG/HR PLUS  50 UG/HR)
     Route: 062
  2. DURAGESIC-50 [Suspect]
     Indication: PAIN
     Dosage: (100 UG/HR PLUS  50 UG/HR)
     Route: 062

REACTIONS (6)
  - HYPERTENSION [None]
  - DRUG DOSE OMISSION [None]
  - ACCIDENTAL EXPOSURE [None]
  - PRODUCT QUALITY ISSUE [None]
  - DEVICE LEAKAGE [None]
  - DYSPNOEA [None]
